FAERS Safety Report 26106544 (Version 1)
Quarter: 2025Q4

REPORT INFORMATION
  Report Type: Spontaneous
  Country: EU (occurrence: EU)
  Receive Date: 20251201
  Receipt Date: 20251201
  Transmission Date: 20260117
  Serious: Yes (Life-Threatening, Hospitalization)
  Sender: TEVA
  Company Number: None

PATIENT
  Age: 76 Year
  Sex: Male
  Weight: 80 kg

DRUGS (1)
  1. ZOLPIDEM [Suspect]
     Active Substance: ZOLPIDEM TARTRATE
     Indication: Insomnia
     Route: 048
     Dates: start: 20250809, end: 20250809

REACTIONS (1)
  - Loss of consciousness [Recovered/Resolved]

NARRATIVE: CASE EVENT DATE: 20250809
